FAERS Safety Report 10154490 (Version 1)
Quarter: 2014Q2

REPORT INFORMATION
  Report Type: Spontaneous
  Country: US (occurrence: US)
  Receive Date: 20140506
  Receipt Date: 20140506
  Transmission Date: 20141212
  Serious: No
  Sender: FDA-Public Use
  Company Number: US-PFIZER INC-2014122034

PATIENT
  Age: 76 Year
  Sex: Male

DRUGS (1)
  1. SUTENT [Suspect]
     Indication: THYROID CANCER
     Dosage: UNK, CYCLIC (4 WEEKS ON AND 2 WEEKS OFF)

REACTIONS (3)
  - Rash papular [Unknown]
  - Blood urine present [Unknown]
  - Off label use [Unknown]
